FAERS Safety Report 20360770 (Version 1)
Quarter: 2022Q1

REPORT INFORMATION
  Report Type: Spontaneous
  Country: DE (occurrence: DE)
  Receive Date: 20220121
  Receipt Date: 20220121
  Transmission Date: 20220423
  Serious: Yes (Other)
  Sender: FDA-Public Use
  Company Number: DE-BoehringerIngelheim-2022-BI-107842

PATIENT
  Age: 78 Year

DRUGS (1)
  1. AFATINIB [Suspect]
     Active Substance: AFATINIB
     Indication: Metastatic squamous cell carcinoma
     Dates: start: 202102, end: 202108

REACTIONS (1)
  - Malignant neoplasm progression [Unknown]
